FAERS Safety Report 9175451 (Version 3)
Quarter: 2013Q2

REPORT INFORMATION
  Report Type: Report from Study
  Country: GB (occurrence: GB)
  Receive Date: 20130320
  Receipt Date: 20130606
  Transmission Date: 20140414
  Serious: Yes (Death, Hospitalization)
  Sender: FDA-Public Use
  Company Number: GB-TEVA-388623USA

PATIENT
  Age: 71 Year
  Sex: Female
  Weight: 43 kg

DRUGS (11)
  1. BENDAMUSTINE [Suspect]
     Indication: CHRONIC LYMPHOCYTIC LEUKAEMIA
     Dosage: UNKNOWN/D
     Route: 042
     Dates: start: 20120724, end: 20121003
  2. BENDAMUSTINE [Suspect]
     Dosage: UNKNOWN/D
     Route: 042
     Dates: start: 20121003
  3. BENDAMUSTINE [Suspect]
     Route: 042
     Dates: start: 20121102
  4. BENDAMUSTINE [Suspect]
     Dosage: UNKNOWN/D
     Route: 042
     Dates: start: 20120823
  5. BENDAMUSTINE [Suspect]
     Route: 042
     Dates: start: 20120822
  6. BENDAMUSTINE [Suspect]
     Dosage: UNKNOWN/D
     Route: 042
     Dates: start: 20120725
  7. BENDAMUSTINE [Suspect]
     Dosage: UNKNOWN/D
     Route: 042
     Dates: start: 20120724
  8. OFATUMUMAB [Suspect]
     Indication: CHRONIC LYMPHOCYTIC LEUKAEMIA
     Dosage: UNKNOWN/D
     Route: 042
     Dates: start: 20120724, end: 20121003
  9. PREDNISOLONE [Concomitant]
     Indication: CHRONIC LYMPHOCYTIC LEUKAEMIA
     Route: 048
     Dates: start: 20120723, end: 20121003
  10. ACICLOVIR [Concomitant]
     Indication: CHRONIC LYMPHOCYTIC LEUKAEMIA
     Route: 048
     Dates: start: 20120724, end: 20121003
  11. ALLOPURINOL [Concomitant]
     Indication: CHRONIC LYMPHOCYTIC LEUKAEMIA
     Dates: start: 20120724, end: 20121003

REACTIONS (2)
  - Plasma cell myeloma [Fatal]
  - Cataract [Unknown]
